FAERS Safety Report 7163252-3 (Version None)
Quarter: 2010Q4

REPORT INFORMATION
  Report Type: 
  Country: None (occurrence: None)
  Receive Date: 20101201
  Receipt Date: 20101118
  Transmission Date: 20110411
  Serious: Yes (Other)
  Sender: FDA-Public Use
  Company Number: ACO_20462_2010

PATIENT
  Age: 81 Year
  Weight: 86.2 kg

DRUGS (32)
  1. AMPYRA [Suspect]
     Indication: GAIT DISTURBANCE
     Dosage: 10 MG, BID, ORAL, 10 MG, QD, ORAL, 10 MG, Q 12 HRS, ORAL
     Route: 048
     Dates: start: 20101015, end: 20101017
  2. AMPYRA [Suspect]
     Indication: GAIT DISTURBANCE
     Dosage: 10 MG, BID, ORAL, 10 MG, QD, ORAL, 10 MG, Q 12 HRS, ORAL
     Route: 048
     Dates: start: 20101018, end: 20101030
  3. DIGOXIN [Concomitant]
  4. NIASPAN [Concomitant]
  5. CARDIZEM [Concomitant]
  6. BACLOFEN [Concomitant]
  7. DIAZEPAM [Concomitant]
  8. AMANTADINE HCL [Concomitant]
  9. VINPOCETINE (VINPOCETINE) [Concomitant]
  10. CARBIDOPAL EVODOPA (CARBIDOPA, LEVODOPA) [Concomitant]
  11. MIRAPEX [Concomitant]
  12. FLOMAX [Concomitant]
  13. FINASTERIDE [Concomitant]
  14. LAMICTAL [Concomitant]
  15. GLYCOLAX (MACROGOL) [Concomitant]
  16. STOOL SOFTENER (DOCUSATE SODIUM) [Concomitant]
  17. PRILOSEC (OMEPRAZOLE) [Concomitant]
  18. MULTI-VITAMINS VITAFIT (CALCIUM PANTOTHENATE, FOLIC ACID, VITAMINS NOS [Concomitant]
  19. COQ10 (UBIDECARENONE) [Concomitant]
  20. VITAMIN D NOS (VITAMIN NOS) [Concomitant]
  21. VITAMIN D [Concomitant]
  22. VITAMIN K2 (MENAQUINONE) [Concomitant]
  23. ASCORBIC ACID [Concomitant]
  24. VITAMIN B12 [Concomitant]
  25. ASPIRIN [Concomitant]
  26. GLUCOSAMINE (GLUCOSAMINE) [Concomitant]
  27. BONE ASSURE [Concomitant]
  28. MAGNESIUM CITRATE (MAGNESIUM CITRATE) [Concomitant]
  29. EPA (OMEGA-3 MARINE TRIGLYCERIDES) [Concomitant]
  30. FLAXSEED OIL (LINUM USITATISSIMUM SEED OIL) [Concomitant]
  31. LECITHIN (LECITHIN) [Concomitant]
  32. METOPROLOL SUCCINATE [Concomitant]

REACTIONS (9)
  - BALANCE DISORDER [None]
  - CONDITION AGGRAVATED [None]
  - CONSTIPATION [None]
  - GAIT DISTURBANCE [None]
  - HALLUCINATION, AUDITORY [None]
  - INAPPROPRIATE SCHEDULE OF DRUG ADMINISTRATION [None]
  - INSOMNIA [None]
  - MULTIPLE SCLEROSIS RELAPSE [None]
  - SKIN BURNING SENSATION [None]
